FAERS Safety Report 10070589 (Version 3)
Quarter: 2014Q2

REPORT INFORMATION
  Report Type: Spontaneous
  Country: AU (occurrence: AU)
  Receive Date: 20140410
  Receipt Date: 20140506
  Transmission Date: 20141212
  Serious: Yes (Death)
  Sender: FDA-Public Use
  Company Number: AU-PFIZER INC-2014095584

PATIENT
  Sex: Male

DRUGS (8)
  1. LIPITOR [Suspect]
     Dosage: 40 MG, UNK
  2. XALACOM [Suspect]
     Dosage: UNK
  3. METOPROLOL TARTRATE [Suspect]
     Dosage: 80 MG, DAILY
  4. SEROQUEL [Suspect]
     Dosage: 37.5 MG, DAILY
  5. AMIODARONE HYDROCHLORIDE [Suspect]
     Dosage: 100 MG, DAILY
  6. FUROSEMIDE [Suspect]
     Dosage: 80 MG, UNK
  7. PRADAXA [Suspect]
     Dosage: 220 MG, DAILY
  8. TEMAZE [Suspect]
     Dosage: 10 MG, DAILY

REACTIONS (1)
  - Cardiac failure [Fatal]
